FAERS Safety Report 7850231-3 (Version None)
Quarter: 2011Q4

REPORT INFORMATION
  Report Type: 
  Country: None (occurrence: None)
  Receive Date: 20111024
  Receipt Date: 20111011
  Transmission Date: 20120403
  Serious: Yes (Other)
  Sender: FDA-Public Use
  Company Number: 1000024596

PATIENT
  Age: 42 Year
  Sex: Female
  Weight: 54.4 kg

DRUGS (2)
  1. SAFRIS (ASENAPINE) [Suspect]
     Indication: BIPOLAR DISORDER
     Dates: end: 20110901
  2. VIIBRYD (VILAZODONE) (10 MILLIGRAM, TABLETS) [Suspect]
     Indication: DEPRESSION
     Dosage: 10 MG (10 MG, 1 IN 1 D),ORAL
     Route: 048
     Dates: start: 20110930, end: 20111004

REACTIONS (1)
  - SEROTONIN SYNDROME [None]
